FAERS Safety Report 7569114-1 (Version None)
Quarter: 2011Q2

REPORT INFORMATION
  Report Type: 
  Country: None (occurrence: None)
  Receive Date: 20110623
  Receipt Date: 20110613
  Transmission Date: 20111010
  Serious: Yes (Hospitalization)
  Sender: FDA-Public Use
  Company Number: JP-CELGENEUS-087-21880-11020772

PATIENT
  Sex: Male

DRUGS (8)
  1. VERAPAMIL HCL [Concomitant]
     Indication: ATRIAL FIBRILLATION
     Dosage: 3 TABLET
     Route: 048
     Dates: end: 20101026
  2. ALLOPURINOL [Concomitant]
     Dosage: 1 TABLET
     Route: 048
     Dates: end: 20101026
  3. REVLIMID [Suspect]
     Indication: MULTIPLE MYELOMA
     Dosage: 10 MILLIGRAM
     Route: 048
     Dates: start: 20101007, end: 20101019
  4. TRICHLORMETHIAZIDE [Concomitant]
     Indication: HYPERTENSION
     Dosage: .5 TABLET
     Route: 048
     Dates: end: 20101026
  5. CARVEDILOL [Concomitant]
     Indication: HYPERTENSION
     Dosage: .5 TABLET
     Route: 048
     Dates: end: 20101026
  6. OXYCONTIN [Concomitant]
     Dosage: 10 MILLIGRAM
     Route: 048
     Dates: end: 20101026
  7. DIFLUCAN [Concomitant]
     Dosage: 100 MILLIGRAM
     Route: 048
     Dates: end: 20101026
  8. MAGNESIUM SULFATE [Concomitant]
     Indication: CONSTIPATION
     Dosage: 3 TABLET
     Route: 048
     Dates: end: 20101026

REACTIONS (1)
  - ILEUS PARALYTIC [None]
